FAERS Safety Report 21844253 (Version 1)
Quarter: 2023Q1

REPORT INFORMATION
  Report Type: Spontaneous
  Country: CN (occurrence: CN)
  Receive Date: 20230110
  Receipt Date: 20230110
  Transmission Date: 20230417
  Serious: Yes (Hospitalization, Other)
  Sender: FDA-Public Use
  Company Number: CN-SA-SAC20230109001411

PATIENT
  Age: 62 Year
  Sex: Male
  Weight: 65 kg

DRUGS (26)
  1. OXALIPLATIN [Suspect]
     Active Substance: OXALIPLATIN
     Indication: Colorectal cancer metastatic
     Dosage: 1300 MG/M2, EVERY 3 WEEKS
     Dates: start: 20221109, end: 20221109
  2. CAPECITABINE [Suspect]
     Active Substance: CAPECITABINE
     Indication: Colorectal cancer metastatic
     Dosage: 1 DF 2X/DAY (1500/2000 MG 2X/DAY),
     Dates: start: 20221109, end: 20221122
  3. BEVACIZUMAB [Suspect]
     Active Substance: BEVACIZUMAB
     Indication: Colorectal cancer metastatic
     Dosage: 75 MG/KG EVERY 3 WEEK
     Route: 042
     Dates: start: 20221109, end: 20221109
  4. ENTERAL NUTRITIONAL SUSPENSION (SP) [Concomitant]
     Indication: Decreased appetite
     Route: 048
     Dates: start: 20221126
  5. DICLOFENAC SODIUM [Concomitant]
     Active Substance: DICLOFENAC SODIUM
     Indication: Pain
     Route: 048
     Dates: start: 20221107
  6. ASCORBIC ACID [Concomitant]
     Active Substance: ASCORBIC ACID
  7. BIOTIN [Concomitant]
     Active Substance: BIOTIN
  8. CALCIUM [Concomitant]
     Active Substance: CALCIUM
  9. CHOLINE [Concomitant]
     Active Substance: CHOLINE
  10. COPPER [Concomitant]
     Active Substance: COPPER
  11. FOLIC ACID [Concomitant]
     Active Substance: FOLIC ACID
  12. IODINE [Concomitant]
     Active Substance: IODINE
  13. IRON [Concomitant]
     Active Substance: IRON
  14. MALTODEXTRIN [Concomitant]
     Active Substance: MALTODEXTRIN
  15. NICOTINIC ACID [Concomitant]
     Active Substance: NIACIN
  16. PANTOTHENIC ACID [Concomitant]
     Active Substance: PANTOTHENIC ACID
  17. POTASSIUM [Concomitant]
     Active Substance: POTASSIUM
  18. PYRIDOXINE HYDROCHLORIDE [Concomitant]
     Active Substance: PYRIDOXINE HYDROCHLORIDE
  19. RETINOL [Concomitant]
     Active Substance: RETINOL
  20. RIBOFLAVIN [Concomitant]
     Active Substance: RIBOFLAVIN
  21. SELENIUM [Concomitant]
     Active Substance: SELENIUM
  22. TAURINE [Concomitant]
     Active Substance: TAURINE
  23. VITAMIN B1 [Concomitant]
     Active Substance: THIAMINE HYDROCHLORIDE
  24. VITAMIN K [Concomitant]
     Active Substance: PHYTONADIONE
  25. VITAMIN D NOS [Concomitant]
     Active Substance: VITAMIN D NOS
  26. ZINC [Concomitant]
     Active Substance: ZINC

REACTIONS (13)
  - Small intestinal obstruction [Not Recovered/Not Resolved]
  - Abdominal infection [Not Recovered/Not Resolved]
  - Atrial fibrillation [Not Recovered/Not Resolved]
  - Nausea [Not Recovered/Not Resolved]
  - Vomiting [Not Recovered/Not Resolved]
  - Urethral pain [Not Recovered/Not Resolved]
  - Dysuria [Not Recovered/Not Resolved]
  - Urinary tract infection [Not Recovered/Not Resolved]
  - Gastrointestinal decompression [Not Recovered/Not Resolved]
  - Pneumatosis [Not Recovered/Not Resolved]
  - Abdominal adhesions [Not Recovered/Not Resolved]
  - Pelvic fluid collection [Not Recovered/Not Resolved]
  - Abdominal pain lower [Not Recovered/Not Resolved]

NARRATIVE: CASE EVENT DATE: 20221127
